FAERS Safety Report 14972616 (Version 10)
Quarter: 2020Q2

REPORT INFORMATION
  Report Type: Spontaneous
  Country: US (occurrence: US)
  Receive Date: 20180605
  Receipt Date: 20200429
  Transmission Date: 20200713
  Serious: Yes (Hospitalization)
  Sender: FDA-Public Use
  Company Number: US-PFIZER INC-2018225498

PATIENT
  Age: 79 Year
  Sex: Male
  Weight: 98 kg

DRUGS (1)
  1. BOSULIF [Suspect]
     Active Substance: BOSUTINIB MONOHYDRATE
     Indication: CHRONIC MYELOID LEUKAEMIA
     Dosage: 500 MG, 1X/DAY
     Route: 048

REACTIONS (9)
  - Anaemia [Unknown]
  - Concussion [Unknown]
  - Peripheral swelling [Unknown]
  - Fall [Unknown]
  - Pain in extremity [Unknown]
  - Joint swelling [Unknown]
  - Cardiac disorder [Unknown]
  - Chest pain [Unknown]
  - Muscle spasms [Recovered/Resolved]

NARRATIVE: CASE EVENT DATE: 2019
